FAERS Safety Report 4616523-6 (Version None)
Quarter: 2005Q2

REPORT INFORMATION
  Report Type: 
  Country: None (occurrence: None)
  Receive Date: 20050311
  Receipt Date: 20050126
  Transmission Date: 20051028
  Serious: No
  Sender: FDA-Public Use
  Company Number: 2005-00122

PATIENT
  Age: 62 Year
  Sex: Male
  Weight: 68 kg

DRUGS (7)
  1. VELCADE [Suspect]
     Indication: MULTIPLE MYELOMA
     Dosage: INTRAVENOUS
     Route: 042
     Dates: start: 20041001, end: 20041001
  2. DOXIL [Suspect]
     Dosage: INTRAVENOUS
     Route: 042
     Dates: start: 20041001, end: 20041001
  3. ZOMETA [Concomitant]
  4. FLOMAX [Concomitant]
  5. LEXAPRO [Concomitant]
  6. ZYPREXA [Concomitant]
  7. FENTANYL [Concomitant]

REACTIONS (2)
  - NASAL CONGESTION [None]
  - RHINITIS [None]
